FAERS Safety Report 13376845 (Version 4)
Quarter: 2017Q2

REPORT INFORMATION
  Report Type: Report from Study
  Country: US (occurrence: US)
  Receive Date: 20170328
  Receipt Date: 20170510
  Transmission Date: 20170830
  Serious: Yes (Death, Hospitalization, Other)
  Sender: FDA-Public Use
  Company Number: US-GILEAD-2017-0264180

PATIENT
  Age: 67 Year
  Sex: Female
  Weight: 51 kg

DRUGS (17)
  1. SILDENAFIL. [Concomitant]
     Active Substance: SILDENAFIL
  2. SPIRIVA [Concomitant]
     Active Substance: TIOTROPIUM BROMIDE MONOHYDRATE
  3. CEFPODOXIME [Concomitant]
     Active Substance: CEFPODOXIME
  4. VENTOLIN [Concomitant]
     Active Substance: ALBUTEROL SULFATE
  5. FUROSEMIDE. [Concomitant]
     Active Substance: FUROSEMIDE
  6. TYVASO [Concomitant]
     Active Substance: TREPROSTINIL
  7. ALBUTEROL SULFATE. [Concomitant]
     Active Substance: ALBUTEROL SULFATE
  8. WARFARIN [Concomitant]
     Active Substance: WARFARIN
  9. MEGESTROL [Concomitant]
     Active Substance: MEGESTROL
  10. DIGOXIN. [Concomitant]
     Active Substance: DIGOXIN
  11. AMBRISENTAN [Suspect]
     Active Substance: AMBRISENTAN
     Indication: PULMONARY ARTERIAL HYPERTENSION
     Dosage: 10 MG, QD
     Route: 048
     Dates: start: 2012
  12. DULERA [Concomitant]
     Active Substance: FORMOTEROL FUMARATE DIHYDRATE\MOMETASONE FUROATE
  13. IPRATROPIUM [Concomitant]
     Active Substance: IPRATROPIUM
  14. OXYGEN. [Concomitant]
     Active Substance: OXYGEN
  15. PREDNISONE. [Concomitant]
     Active Substance: PREDNISONE
  16. METOPROLOL TARTATE HEXAL [Concomitant]
  17. K-TAB [Concomitant]
     Active Substance: POTASSIUM CHLORIDE

REACTIONS (3)
  - Dyspnoea [Recovered/Resolved]
  - Pulmonary arterial hypertension [Fatal]
  - Hypoxia [Unknown]

NARRATIVE: CASE EVENT DATE: 20170322
